FAERS Safety Report 6784879-4 (Version None)
Quarter: 2010Q2

REPORT INFORMATION
  Report Type: 
  Country: None (occurrence: None)
  Receive Date: 20100618
  Receipt Date: 20100608
  Transmission Date: 20101027
  Serious: Yes (Hospitalization)
  Sender: FDA-Public Use
  Company Number: 7003916

PATIENT
  Age: 63 Year
  Sex: Female

DRUGS (5)
  1. REBIF [Suspect]
     Indication: MULTIPLE SCLEROSIS
     Dosage: 44 MCG, 3 IN 1 WK, SUBCUTANEOUS
     Route: 058
     Dates: start: 20091218, end: 20100601
  2. ZANAFLEX [Concomitant]
  3. CELEXA [Concomitant]
  4. SYNTHROID [Concomitant]
  5. TEMAZEPAM [Concomitant]

REACTIONS (8)
  - BLOOD GLUCOSE INCREASED [None]
  - BLOOD PRESSURE FLUCTUATION [None]
  - DIARRHOEA [None]
  - GAIT DISTURBANCE [None]
  - HYPOAESTHESIA [None]
  - MULTIPLE SCLEROSIS RELAPSE [None]
  - NAUSEA [None]
  - VOMITING [None]
